FAERS Safety Report 11051558 (Version 1)
Quarter: 2015Q2

REPORT INFORMATION
  Report Type: Spontaneous
  Country: GB (occurrence: GB)
  Receive Date: 20150421
  Receipt Date: 20150421
  Transmission Date: 20150821
  Serious: Yes (Other)
  Sender: FDA-Public Use
  Company Number: GB-TEVA-555637ACC

PATIENT
  Age: 73 Year
  Sex: Female
  Weight: 70 kg

DRUGS (6)
  1. CLOMIPRAMINE [Concomitant]
     Active Substance: CLOMIPRAMINE
     Dates: start: 20140722
  2. HYDROCORTISONE. [Concomitant]
     Active Substance: HYDROCORTISONE
     Dosage: 2 DOSAGE FORMS DAILY;
     Dates: start: 20150224, end: 20150303
  3. LYRICA [Concomitant]
     Active Substance: PREGABALIN
     Dosage: 1 DOSAGE FORMS DAILY; AT NIGHT
     Dates: start: 20150311
  4. PREGABALIN. [Concomitant]
     Active Substance: PREGABALIN
     Dates: start: 20141017, end: 20150311
  5. SIMVASTATIN. [Concomitant]
     Active Substance: SIMVASTATIN
     Dosage: 1 DOSAGE FORMS DAILY; AT NIGHT
     Dates: start: 20140722
  6. RAMIPRIL. [Suspect]
     Active Substance: RAMIPRIL
     Route: 048
     Dates: start: 20150325, end: 20150401

REACTIONS (5)
  - Swelling face [Recovered/Resolved]
  - Dysarthria [Recovered/Resolved]
  - Dysphagia [Recovered/Resolved]
  - Spasmodic dysphonia [Recovered/Resolved]
  - Gingival swelling [Recovered/Resolved]

NARRATIVE: CASE EVENT DATE: 20150325
